FAERS Safety Report 6414930-2 (Version None)
Quarter: 2009Q4

REPORT INFORMATION
  Report Type: 
  Country: None (occurrence: None)
  Receive Date: 20091026
  Receipt Date: 20090309
  Transmission Date: 20100525
  Serious: No
  Sender: FDA-Public Use
  Company Number: US-ABBOTT-09P-163-0561254-00

PATIENT
  Sex: Female
  Weight: 111.23 kg

DRUGS (5)
  1. LUPRON DEPOT [Suspect]
     Indication: UTERINE LEIOMYOMA
     Route: 058
     Dates: start: 20090210
  2. LABETALOL HCL [Concomitant]
     Indication: HYPERTENSION
     Route: 048
  3. AMBIEN CR [Concomitant]
     Indication: INSOMNIA
     Dosage: 1 IN 1 DAY-AT BEDTIME
     Route: 048
  4. PROZAC [Concomitant]
     Indication: ANXIETY
     Route: 048
  5. PROZAC [Concomitant]
     Indication: DEPRESSION

REACTIONS (3)
  - FEELING JITTERY [None]
  - MUSCULAR WEAKNESS [None]
  - PAIN IN EXTREMITY [None]
